FAERS Safety Report 7082881-9 (Version None)
Quarter: 2010Q4

REPORT INFORMATION
  Report Type: 
  Country: None (occurrence: None)
  Receive Date: 20101104
  Receipt Date: 20101022
  Transmission Date: 20110411
  Serious: Yes (Hospitalization, Other)
  Sender: FDA-Public Use
  Company Number: PHHY2010CH70930

PATIENT
  Age: 71 Year
  Sex: Male

DRUGS (11)
  1. ZOMETA [Suspect]
     Indication: PROSTATE CANCER
     Dosage: UNK
     Dates: start: 20081216, end: 20100317
  2. TAXOTERE [Suspect]
     Indication: PROSTATE CANCER
     Dosage: UNK
     Dates: start: 20081216, end: 20100310
  3. PREDNISONE [Suspect]
     Indication: PROSTATE CANCER
     Dosage: UNK
     Dates: start: 20081216, end: 20100310
  4. ZOLADEX [Suspect]
     Indication: PROSTATE CANCER
     Dosage: 1.8 MG / 3 MONTHS
     Dates: end: 20100301
  5. METOHEXAL [Concomitant]
     Dosage: 47.5 MG/D
  6. CALCIUM D3 [Concomitant]
     Dosage: DOSAGE FORMS/DAY
  7. MORPHINE [Concomitant]
     Dosage: 60 MG/D
  8. NOVODIGAL [Concomitant]
     Dosage: 1 DOSAGE FORM/D
     Dates: start: 20100301, end: 20100301
  9. OMEPRAZOLE [Concomitant]
     Dosage: 20 MG/D
  10. METOCLOPRAMID [Concomitant]
     Dosage: UNK
     Dates: end: 20100301
  11. MACROGOL [Concomitant]
     Dosage: 2 DOSAGE FORMS/DAY

REACTIONS (15)
  - ABDOMINAL PAIN [None]
  - ANAEMIA [None]
  - ARRHYTHMIA [None]
  - BLADDER PAIN [None]
  - CHOLESTATIC LIVER INJURY [None]
  - CHROMATURIA [None]
  - DYSURIA [None]
  - FAECES DISCOLOURED [None]
  - JAUNDICE CHOLESTATIC [None]
  - LEUKOPENIA [None]
  - NEUTROPENIA [None]
  - POLLAKIURIA [None]
  - PYREXIA [None]
  - SEPSIS [None]
  - TACHYCARDIA [None]
